FAERS Safety Report 25247519 (Version 2)
Quarter: 2025Q2

REPORT INFORMATION
  Report Type: Report from Study
  Country: IN (occurrence: IN)
  Receive Date: 20250428
  Receipt Date: 20250521
  Transmission Date: 20250716
  Serious: Yes (Death)
  Sender: DAIICHI
  Company Number: IN-AstraZeneca-CH-00854617A

PATIENT
  Sex: Female
  Weight: 45 kg

DRUGS (1)
  1. ENHERTU [Suspect]
     Active Substance: FAM-TRASTUZUMAB DERUXTECAN-NXKI
     Indication: HER2 positive breast cancer
     Dosage: 200 MILLIGRAM, Q3W
     Route: 041

REACTIONS (5)
  - General physical health deterioration [Fatal]
  - Platelet count decreased [Fatal]
  - Haemoglobin decreased [Fatal]
  - Laboratory test abnormal [Fatal]
  - Phenolsulfonphthalein test abnormal [Fatal]
